FAERS Safety Report 5938755-7 (Version None)
Quarter: 2008Q4

REPORT INFORMATION
  Report Type: 
  Country: None (occurrence: None)
  Receive Date: 20081103
  Receipt Date: 20081027
  Transmission Date: 20090506
  Serious: Yes (Hospitalization)
  Sender: FDA-Public Use
  Company Number: JP-BAYER-200812602BYL

PATIENT
  Age: 67 Year
  Sex: Male
  Weight: 68 kg

DRUGS (3)
  1. NEXAVAR [Suspect]
     Indication: RENAL CELL CARCINOMA STAGE IV
     Dosage: AS USED: 800 MG  UNIT DOSE: 200 MG
     Route: 048
     Dates: start: 20080717, end: 20080805
  2. NEXAVAR [Suspect]
     Dosage: AS USED: 400 MG  UNIT DOSE: 200 MG
     Route: 048
     Dates: start: 20080812, end: 20080921
  3. NEXAVAR [Suspect]
     Dosage: AS USED: 600 MG  UNIT DOSE: 200 MG
     Route: 048
     Dates: start: 20080922, end: 20081014

REACTIONS (8)
  - ANOREXIA [None]
  - BACK PAIN [None]
  - DYSPNOEA [None]
  - HEAT RASH [None]
  - HYPERCALCAEMIA [None]
  - MALAISE [None]
  - PALMAR-PLANTAR ERYTHRODYSAESTHESIA SYNDROME [None]
  - PLEURAL EFFUSION [None]
